FAERS Safety Report 6159366-7 (Version None)
Quarter: 2009Q2

REPORT INFORMATION
  Report Type: 
  Country: None (occurrence: None)
  Receive Date: 20090417
  Receipt Date: 20090408
  Transmission Date: 20091009
  Serious: Yes (Other)
  Sender: FDA-Public Use
  Company Number: IE-ELI_LILLY_AND_COMPANY-IE200904001591

PATIENT
  Age: 34 Year
  Sex: Male

DRUGS (7)
  1. ZYPREXA [Suspect]
     Indication: MENTAL DISORDER
     Dosage: 15 MG, UNK
     Dates: start: 20070208
  2. SEROQUEL [Concomitant]
     Indication: MENTAL DISORDER
     Dosage: 300 MG, UNK
     Dates: start: 20070523
  3. EPILIM CHRONO [Concomitant]
     Indication: POST-TRAUMATIC EPILEPSY
     Dosage: 800 MG, 2/D
     Dates: start: 20040525
  4. TRAMADOL HCL [Concomitant]
     Indication: DEPENDENCE
     Dosage: 50 MG, 3/D
     Dates: start: 20060619
  5. XANAX [Concomitant]
     Indication: ANXIETY
     Dosage: 500 UG, 2/D
     Dates: start: 20030826
  6. RIVOTRIL [Concomitant]
     Indication: MENTAL DISORDER
     Dosage: 0.5 MG, 2/D
     Dates: start: 20071012
  7. ZOPITAN [Concomitant]
     Indication: ANXIETY
     Dosage: 7.5 MG, OTHER
     Dates: start: 20050802

REACTIONS (1)
  - PULMONARY EMBOLISM [None]
